FAERS Safety Report 10445874 (Version 2)
Quarter: 2014Q3

REPORT INFORMATION
  Report Type: Spontaneous
  Country: US (occurrence: US)
  Receive Date: 20140910
  Receipt Date: 20140926
  Transmission Date: 20150326
  Serious: No
  Sender: FDA-Public Use
  Company Number: US-GILEAD-2014-0114638

PATIENT
  Age: 67 Year
  Sex: Male

DRUGS (2)
  1. WARFARIN [Concomitant]
     Active Substance: WARFARIN
  2. LETAIRIS [Suspect]
     Active Substance: AMBRISENTAN
     Indication: PRODUCT USED FOR UNKNOWN INDICATION
     Dosage: 5 MG, QD
     Route: 065
     Dates: start: 20140814

REACTIONS (6)
  - Influenza like illness [Unknown]
  - Skin fissures [Unknown]
  - Pain in extremity [Unknown]
  - Oedema peripheral [Unknown]
  - Weight increased [Unknown]
  - Oedema [Unknown]

NARRATIVE: CASE EVENT DATE: 20140815
